FAERS Safety Report 17651830 (Version 1)
Quarter: 2020Q2

REPORT INFORMATION
  Report Type: Report from Study
  Country: US (occurrence: US)
  Receive Date: 20200409
  Receipt Date: 20200409
  Transmission Date: 20200713
  Serious: No
  Sender: FDA-Public Use
  Company Number: US-REGENERON PHARMACEUTICALS, INC.-2019-45219

PATIENT

DRUGS (1)
  1. RILONACEPT [Suspect]
     Active Substance: RILONACEPT
     Indication: HAEMOPHAGOCYTIC LYMPHOHISTIOCYTOSIS
     Dosage: 220 MG, WEEKLY
     Route: 058
     Dates: start: 20180727

REACTIONS (3)
  - Pyrexia [Unknown]
  - Cough [Unknown]
  - Off label use [Unknown]
